FAERS Safety Report 6913698-0 (Version None)
Quarter: 2010Q3

REPORT INFORMATION
  Report Type: 
  Country: None (occurrence: None)
  Receive Date: 20100806
  Receipt Date: 20100806
  Transmission Date: 20110219
  Serious: No
  Sender: FDA-Public Use
  Company Number: None

PATIENT
  Age: 54 Year
  Sex: Female
  Weight: 92.9874 kg

DRUGS (1)
  1. COPAXONE [Suspect]
     Indication: MULTIPLE SCLEROSIS
     Dosage: 20MG 1 EVERYDAY

REACTIONS (8)
  - BACK PAIN [None]
  - CHILLS [None]
  - DYSPNOEA [None]
  - GAIT DISTURBANCE [None]
  - NAUSEA [None]
  - PAIN IN EXTREMITY [None]
  - SYNCOPE [None]
  - THROAT TIGHTNESS [None]
